FAERS Safety Report 7372281-6 (Version None)
Quarter: 2011Q1

REPORT INFORMATION
  Report Type: 
  Country: None (occurrence: None)
  Receive Date: 20110324
  Receipt Date: 20110318
  Transmission Date: 20110831
  Serious: Yes (Other)
  Sender: FDA-Public Use
  Company Number: A0918972A

PATIENT
  Age: 70 Year
  Sex: Female

DRUGS (1)
  1. FLONASE [Suspect]
     Dosage: 2SPR PER DAY
     Route: 045

REACTIONS (2)
  - DYSPHONIA [None]
  - ANOSMIA [None]
